FAERS Safety Report 11109712 (Version 1)
Quarter: 2015Q2

REPORT INFORMATION
  Report Type: Spontaneous
  Country: GB (occurrence: GB)
  Receive Date: 20150513
  Receipt Date: 20150513
  Transmission Date: 20150821
  Serious: Yes (Death)
  Sender: FDA-Public Use
  Company Number: GB-WATSON-2015-09699

PATIENT
  Age: 83 Year
  Sex: Male
  Weight: 70.4 kg

DRUGS (12)
  1. CLARITHROMYCIN (UNKNOWN) [Suspect]
     Active Substance: CLARITHROMYCIN
     Indication: PNEUMONIA ASPIRATION
     Dosage: 4.5 G, TID
     Route: 042
     Dates: start: 20150201, end: 20150206
  2. DOXYCYCLINE (UNKNOWN) [Suspect]
     Active Substance: DOXYCYCLINE
     Indication: URINARY TRACT INFECTION
     Dosage: 100 MG, DAILY
     Route: 048
     Dates: start: 20150201, end: 20150206
  3. OFLOXACINE (UNKNOWN) [Suspect]
     Active Substance: OFLOXACIN
     Indication: EPIDIDYMITIS
     Dosage: 200 MG, BID
     Route: 048
     Dates: start: 20150129, end: 20150212
  4. MEROPENEM (UNKNOWN) [Suspect]
     Active Substance: MEROPENEM
     Indication: UROSEPSIS
     Dosage: 1 G, TID
     Route: 042
     Dates: start: 20150203, end: 20150210
  5. TAZOCIN [Suspect]
     Active Substance: PIPERACILLIN SODIUM\TAZOBACTAM SODIUM
     Indication: PNEUMONIA ASPIRATION
     Dosage: 4.5 G, TID
     Route: 042
     Dates: start: 20150223, end: 20150226
  6. LANSOPRAZOLE (UNKNOWN) [Suspect]
     Active Substance: LANSOPRAZOLE
     Indication: PRODUCT USED FOR UNKNOWN INDICATION
     Dosage: UNK
     Route: 048
     Dates: start: 20150122, end: 20150226
  7. OMEPRAZOLE (UNKNOWN) [Suspect]
     Active Substance: OMEPRAZOLE
     Indication: PRODUCT USED FOR UNKNOWN INDICATION
     Dosage: UNK
     Route: 042
     Dates: start: 20150311, end: 20150316
  8. MEROPENEM (UNKNOWN) [Suspect]
     Active Substance: MEROPENEM
     Indication: URINARY TRACT INFECTION
     Dosage: 1 G, TID
     Route: 042
     Dates: start: 20150224, end: 20150303
  9. MEROPENEM (UNKNOWN) [Suspect]
     Active Substance: MEROPENEM
     Indication: LOWER RESPIRATORY TRACT INFECTION
     Dosage: 1 G, TID
     Route: 042
     Dates: start: 20150320, end: 20150323
  10. VANCOMYCIN (UNKNOWN) [Suspect]
     Active Substance: VANCOMYCIN
     Indication: PNEUMONIA ASPIRATION
     Dosage: 500 MG, BID
     Route: 042
     Dates: start: 20150320, end: 20150325
  11. OMEPRAZOLE (UNKNOWN) [Suspect]
     Active Substance: OMEPRAZOLE
     Dosage: UNK
     Route: 048
     Dates: start: 20150317, end: 20150325
  12. TAZOCIN [Suspect]
     Active Substance: PIPERACILLIN SODIUM\TAZOBACTAM SODIUM
     Indication: LOWER RESPIRATORY TRACT INFECTION
     Dosage: 4.5 G, TID
     Route: 042
     Dates: start: 20150122, end: 20150127

REACTIONS (1)
  - Clostridium difficile infection [Fatal]

NARRATIVE: CASE EVENT DATE: 20150316
